FAERS Safety Report 18312198 (Version 4)
Quarter: 2020Q4

REPORT INFORMATION
  Report Type: Report from Study
  Country: FR (occurrence: FR)
  Receive Date: 20200925
  Receipt Date: 20201106
  Transmission Date: 20210113
  Serious: Yes (Life-Threatening, Hospitalization)
  Sender: FDA-Public Use
  Company Number: FR-WORLDWIDE CLINICAL TRIALS-2020-FR-000494

PATIENT
  Age: 54 Year
  Sex: Female
  Weight: 63 kg

DRUGS (9)
  1. DCC-2618 [Suspect]
     Active Substance: RIPRETINIB
     Indication: GASTROINTESTINAL STROMAL TUMOUR
     Dosage: 150 MILLIGRAM, QD
     Route: 048
     Dates: start: 20200917, end: 20200922
  2. OXYCODONE [Concomitant]
     Active Substance: OXYCODONE
     Indication: ABDOMINAL PAIN
     Dosage: 30 MILLIGRAM, BID
     Route: 048
     Dates: start: 20200813, end: 20200910
  3. PREDNISOLONE. [Concomitant]
     Active Substance: PREDNISOLONE
     Indication: ASCITES
     Dosage: 20 MILLIGRAM, TID
     Route: 048
     Dates: start: 20200916
  4. AMOXICILLIN. [Concomitant]
     Active Substance: AMOXICILLIN
     Indication: URINARY TRACT INFECTION
     Dosage: 2 GRAM
     Dates: start: 20200913, end: 20200919
  5. METOCLOPRAMIDE. [Concomitant]
     Active Substance: METOCLOPRAMIDE
     Indication: NAUSEA
     Dosage: 10 MILLIGRAM, PRN
     Route: 048
     Dates: start: 20200813
  6. DCC-2618 [Suspect]
     Active Substance: RIPRETINIB
     Dosage: 100 MILLIGRAM, QD
     Route: 048
     Dates: start: 20201001
  7. NEFOPAM [Concomitant]
     Active Substance: NEFOPAM
     Indication: ABDOMINAL PAIN
     Dosage: 40 MILLIGRAM, QD
     Route: 042
     Dates: start: 20200916
  8. PARACETAMOL CODEINE [Concomitant]
     Active Substance: ACETAMINOPHEN\CODEINE PHOSPHATE
     Indication: ABDOMINAL PAIN
     Dosage: 500 MILLIGRAM, TID
     Route: 048
     Dates: start: 20200908
  9. INSULINE ASPARTATE [Concomitant]
     Active Substance: INSULIN ASPART
     Indication: DIABETES MELLITUS
     Dosage: 100 MILLIGRAM, PRN
     Route: 058
     Dates: start: 20200919

REACTIONS (1)
  - Hypertensive crisis [Recovered/Resolved]

NARRATIVE: CASE EVENT DATE: 20200922
